FAERS Safety Report 9156472 (Version 1)
Quarter: 2013Q1

REPORT INFORMATION
  Report Type: Spontaneous
  Country: AU (occurrence: None)
  Receive Date: 20130208
  Receipt Date: 20130208
  Transmission Date: 20140127
  Serious: Yes (Other)
  Sender: FDA-Public Use
  Company Number: 2013P1001673

PATIENT
  Sex: 0

DRUGS (4)
  1. DIAZEPAM [Suspect]
  2. OXYCODONE [Suspect]
  3. IBUPROFEN [Suspect]
  4. DOXYLAMINE [Suspect]

REACTIONS (3)
  - Overdose [None]
  - Hypotension [None]
  - Blood pressure systolic decreased [None]
